FAERS Safety Report 9996106 (Version 1)
Quarter: 2014Q1

REPORT INFORMATION
  Report Type: Spontaneous
  Country: US (occurrence: None)
  Receive Date: 20140221
  Receipt Date: 20140221
  Transmission Date: 20141002
  Serious: Yes (Other)
  Sender: FDA-Public Use
  Company Number: 1000050767

PATIENT
  Age: 65 Year
  Sex: Female

DRUGS (1)
  1. TUDORZA PRESSAIR (ACLIDINIUM BROMIDE) (400 MICROGRAM, POWDER) [Suspect]
     Indication: BRONCHITIS CHRONIC
     Route: 055
     Dates: start: 20131028, end: 20131029

REACTIONS (2)
  - Feeling abnormal [None]
  - Vision blurred [None]
